FAERS Safety Report 5313262-3 (Version None)
Quarter: 2007Q2

REPORT INFORMATION
  Report Type: 
  Country: None (occurrence: None)
  Receive Date: 20070501
  Receipt Date: 20070419
  Transmission Date: 20071010
  Serious: Yes (Other)
  Sender: FDA-Public Use
  Company Number: US-JNJFOC-20070301629

PATIENT
  Age: 28 Year
  Sex: Female
  Weight: 84.37 kg

DRUGS (2)
  1. TOPAMAX [Suspect]
     Indication: BIPOLAR I DISORDER
     Route: 048
  2. WELLBUTRIN [Concomitant]
     Indication: DEPRESSION

REACTIONS (14)
  - ABNORMAL BEHAVIOUR [None]
  - AFFECT LABILITY [None]
  - AFFECTIVE DISORDER [None]
  - ANOREXIA [None]
  - APATHY [None]
  - CONFUSIONAL STATE [None]
  - DEPERSONALISATION [None]
  - DISTURBANCE IN ATTENTION [None]
  - MANIA [None]
  - MEMORY IMPAIRMENT [None]
  - NERVOUSNESS [None]
  - OBSESSIVE-COMPULSIVE DISORDER [None]
  - PERSONALITY CHANGE [None]
  - WEIGHT DECREASED [None]
